FAERS Safety Report 4921488-3 (Version None)
Quarter: 2006Q1

REPORT INFORMATION
  Report Type: 
  Country: None (occurrence: None)
  Receive Date: 20060224
  Receipt Date: 20050926
  Transmission Date: 20060701
  Serious: Yes (Other)
  Sender: FDA-Public Use
  Company Number: PHEH2005US10676

PATIENT
  Sex: Female

DRUGS (26)
  1. ZOMETA [Suspect]
     Indication: HYPERCALCAEMIA
     Dosage: UNK, UNK
     Dates: start: 20011226, end: 20041208
  2. AREDIA [Suspect]
     Indication: HYPERCALCAEMIA
     Dosage: 90MG QMO
     Dates: start: 20010315, end: 20011226
  3. MARINOL [Concomitant]
     Indication: NAUSEA
     Dosage: 5MG UNK
  4. PEPCID [Concomitant]
  5. PERCOCET [Concomitant]
  6. AMBIEN [Concomitant]
     Indication: SLEEP DISORDER
     Dosage: 10MG QHS
     Dates: start: 20020123
  7. PAXIL [Concomitant]
     Indication: DEPRESSION
     Dosage: 40MG QD
     Dates: start: 20020123
  8. COUMADIN [Concomitant]
     Dosage: 1MG QD
  9. LIPITOR [Concomitant]
     Dosage: 10MG QD
  10. CELEBREX [Concomitant]
     Indication: ARTHRITIS
     Dosage: 200MG BID
     Dates: start: 20010329
  11. LOVENOX [Concomitant]
     Dates: start: 20030101
  12. NEURONTIN [Concomitant]
     Indication: MUSCLE SPASMS
     Dosage: 1200MG QD
     Dates: start: 20030801
  13. QUININE [Concomitant]
     Indication: MUSCLE SPASMS
     Dates: start: 20030402
  14. ALLEGRA [Concomitant]
  15. IBUPROFEN [Concomitant]
  16. FEMARA [Concomitant]
     Dosage: 2.5MG QD
     Dates: start: 20020123
  17. HERCEPTIN [Concomitant]
     Dosage: Q3WK
     Dates: start: 20020626
  18. TAXOTERE [Concomitant]
     Dosage: UNK, UNK
     Dates: start: 20010328, end: 20010703
  19. INNOHEP [Concomitant]
     Dosage: 13,000 UNK
     Dates: start: 20030820, end: 20030922
  20. ANZEMET [Concomitant]
  21. DEXAMETHASONE SODIUM PHOSPHATE [Concomitant]
  22. GEMZAR [Concomitant]
     Dates: start: 20010827, end: 20010829
  23. NAVELBINE [Concomitant]
     Dosage: UNK, UNK
     Dates: start: 20010703, end: 20020910
  24. LEVAQUIN [Concomitant]
  25. ATIVAN [Concomitant]
     Indication: NAUSEA
     Dosage: 1MG Q8H PRN
     Dates: start: 20020123
  26. EPOGEN [Concomitant]

REACTIONS (45)
  - ARTHRITIS [None]
  - ASTHENIA [None]
  - BLOOD CALCIUM DECREASED [None]
  - BLOOD CREATININE INCREASED [None]
  - BLOOD UREA INCREASED [None]
  - BONE DEBRIDEMENT [None]
  - BONE DISORDER [None]
  - CATHETER RELATED COMPLICATION [None]
  - CATHETER REMOVAL [None]
  - CONFUSIONAL STATE [None]
  - COORDINATION ABNORMAL [None]
  - COUGH [None]
  - DEEP VEIN THROMBOSIS [None]
  - DENTAL TREATMENT [None]
  - DEPRESSION [None]
  - DIZZINESS [None]
  - DYSPNOEA [None]
  - ERYTHEMA [None]
  - EXCESSIVE GRANULATION TISSUE [None]
  - FATIGUE [None]
  - FISTULA [None]
  - GASTROOESOPHAGEAL REFLUX DISEASE [None]
  - GINGIVAL ULCERATION [None]
  - GINGIVITIS [None]
  - HEADACHE [None]
  - HIATUS HERNIA [None]
  - HYPERCALCAEMIA [None]
  - IMPAIRED HEALING [None]
  - INCISIONAL DRAINAGE [None]
  - NAUSEA [None]
  - NEUROPATHY PERIPHERAL [None]
  - ORAL SURGERY [None]
  - OSTEOMYELITIS [None]
  - OSTEONECROSIS [None]
  - PAIN [None]
  - PAIN IN EXTREMITY [None]
  - PLEURAL EFFUSION [None]
  - PRIMARY SEQUESTRUM [None]
  - RASH [None]
  - RHINITIS [None]
  - SWELLING [None]
  - TOOTH DISORDER [None]
  - TOOTH EXTRACTION [None]
  - VISUAL DISTURBANCE [None]
  - VOMITING [None]
